FAERS Safety Report 8784484 (Version 1)
Quarter: 2012Q4

REPORT INFORMATION
  Report Type: Spontaneous
  Country: US (occurrence: None)
  Receive Date: 20120830
  Receipt Date: 20120830
  Transmission Date: 20130627
  Serious: Yes (Hospitalization)
  Sender: FDA-Public Use
  Company Number: 1383243

PATIENT
  Age: 77 Year
  Sex: Male

DRUGS (2)
  1. METHOTREXATE [Suspect]
     Indication: RHEUMATOID ARTHRITIS
  2. PREDNISONE [Suspect]

REACTIONS (5)
  - Intestinal obstruction [None]
  - Histoplasmosis disseminated [None]
  - Cytomegalovirus infection [None]
  - Cardiac failure congestive [None]
  - Condition aggravated [None]
